FAERS Safety Report 11952624 (Version 1)
Quarter: 2016Q1

REPORT INFORMATION
  Report Type: Report from Study
  Country: DE (occurrence: DE)
  Receive Date: 20160125
  Receipt Date: 20160125
  Transmission Date: 20160526
  Serious: Yes (Hospitalization)
  Sender: FDA-Public Use
  Company Number: DE-BAXALTA-2016BLT000254

PATIENT
  Age: 36 Year
  Sex: Male
  Weight: 122 kg

DRUGS (8)
  1. PEGYLATED COAGULATION FACTOR VIII [Suspect]
     Active Substance: RURIOCTOCOG ALFA PEGOL
     Dosage: ADDITIONAL EXPOSURE; FREQUENCY EVERY 5 DAYS
     Route: 042
     Dates: start: 20160110, end: 20160110
  2. PEGYLATED COAGULATION FACTOR VIII [Suspect]
     Active Substance: RURIOCTOCOG ALFA PEGOL
     Dosage: ADDITIONAL EXPOSURE; FREQUENCY EVERY 5 DAYSUNK
     Route: 042
     Dates: start: 20160110, end: 20160110
  3. PEGYLATED COAGULATION FACTOR VIII [Suspect]
     Active Substance: RURIOCTOCOG ALFA PEGOL
     Dosage: LAST ADMINISTRATION PRIOR TO EVENT (FREQUENCY EVERY 5 DAYS)
     Route: 042
     Dates: start: 20160106, end: 20160106
  4. IBUPROFEN. [Concomitant]
     Active Substance: IBUPROFEN
     Indication: PRODUCT USED FOR UNKNOWN INDICATION
     Dosage: 400 MG, 3X A DAY
     Route: 048
     Dates: start: 20160113
  5. METAMIZOLE SODIUM [Concomitant]
     Active Substance: METAMIZOLE SODIUM
     Indication: PAIN
     Dosage: 20 (UNITS NOT REPORTED), 3X A DAY
     Route: 048
     Dates: start: 20160111, end: 20160111
  6. PEGYLATED COAGULATION FACTOR VIII [Suspect]
     Active Substance: RURIOCTOCOG ALFA PEGOL
     Dosage: FIRST ADMINISTRATION (FREQUENCY EVERY 3.5 DAYS)
     Route: 042
     Dates: start: 20131212, end: 20131212
  7. PEGYLATED COAGULATION FACTOR VIII [Suspect]
     Active Substance: RURIOCTOCOG ALFA PEGOL
     Dosage: LAST ADMINISTRATION PRIOR TO EVENT (FREQUENCY EVERY 5 DAYS)
     Route: 042
     Dates: start: 20160106, end: 20160106
  8. PEGYLATED COAGULATION FACTOR VIII [Suspect]
     Active Substance: RURIOCTOCOG ALFA PEGOL
     Indication: FACTOR VIII DEFICIENCY
     Dosage: FIRST ADMINISTRATION (FREQUENCY EVERY 3.5 DAYS)
     Route: 042
     Dates: start: 20131212, end: 20131212

REACTIONS (2)
  - Urinary tract infection [Recovering/Resolving]
  - Ureterolithiasis [Recovering/Resolving]

NARRATIVE: CASE EVENT DATE: 20160108
